FAERS Safety Report 6431084-7 (Version None)
Quarter: 2009Q4

REPORT INFORMATION
  Report Type: 
  Country: None (occurrence: None)
  Receive Date: 20091106
  Receipt Date: 20091028
  Transmission Date: 20100525
  Serious: No
  Sender: FDA-Public Use
  Company Number: B0600989A

PATIENT

DRUGS (1)
  1. RELENZA [Suspect]
     Indication: INFLUENZA

REACTIONS (1)
  - DRUG EXPOSURE VIA BREAST MILK [None]
